FAERS Safety Report 4437187-0 (Version None)
Quarter: 2004Q3

REPORT INFORMATION
  Report Type: 
  Country: None (occurrence: None)
  Receive Date: 20040726
  Receipt Date: 20040303
  Transmission Date: 20050211
  Serious: No
  Sender: FDA-Public Use
  Company Number: USA040360861

PATIENT
  Age: 49 Year
  Sex: Female

DRUGS (2)
  1. FORTEO [Suspect]
     Indication: MUSCULOSKELETAL DISORDER
     Dates: start: 20040101
  2. DEPO-PROVERA [Concomitant]

REACTIONS (1)
  - ALOPECIA [None]
